FAERS Safety Report 6427335-5 (Version None)
Quarter: 2009Q4

REPORT INFORMATION
  Report Type: 
  Country: None (occurrence: None)
  Receive Date: 20091104
  Receipt Date: 20091023
  Transmission Date: 20100525
  Serious: Yes (Hospitalization, Other)
  Sender: FDA-Public Use
  Company Number: US-ELI_LILLY_AND_COMPANY-US200910007979

PATIENT
  Sex: Female

DRUGS (4)
  1. FORTEO [Suspect]
     Dosage: UNK, UNK
     Dates: start: 20090101
  2. SYNTHROID [Concomitant]
  3. ESTROGEN NOS [Concomitant]
  4. PROGESTERONE [Concomitant]

REACTIONS (1)
  - HIP ARTHROPLASTY [None]
